FAERS Safety Report 7501425-8 (Version None)
Quarter: 2011Q2

REPORT INFORMATION
  Report Type: 
  Country: None (occurrence: None)
  Receive Date: 20110524
  Receipt Date: 20110521
  Transmission Date: 20111010
  Serious: Yes (Other)
  Sender: FDA-Public Use
  Company Number: US-ABBOTT-11P-163-0724101-00

PATIENT
  Age: 60 Year
  Sex: Female

DRUGS (8)
  1. SINGULAIR [Concomitant]
     Indication: PRODUCT USED FOR UNKNOWN INDICATION
     Dosage: DAILY
  2. ALBUTEROL SULFATE AUTOHALER [Concomitant]
     Indication: PRODUCT USED FOR UNKNOWN INDICATION
     Dosage: NEBULIZER: 4 TIMES DAILY
  3. HUMIRA [Suspect]
     Indication: PSORIASIS
     Dates: start: 20101118
  4. VICODIN [Concomitant]
     Indication: PAIN
     Route: 048
  5. HYDROCHLOROTHIAZIDE [Concomitant]
     Indication: BLOOD PRESSURE INCREASED
     Dosage: AS NEEDED
  6. ZANTAC [Concomitant]
     Indication: PRODUCT USED FOR UNKNOWN INDICATION
     Route: 048
  7. PROVENTIL [Concomitant]
     Indication: PRODUCT USED FOR UNKNOWN INDICATION
     Dosage: 4 TIMES DAILY
     Route: 055
  8. XANAX [Concomitant]
     Indication: ANXIETY
     Route: 048

REACTIONS (8)
  - INJECTION SITE PAIN [None]
  - INCORRECT DOSE ADMINISTERED [None]
  - DIZZINESS [None]
  - EMPHYSEMA [None]
  - GAIT DISTURBANCE [None]
  - AORTIC ANEURYSM [None]
  - MITRAL VALVE INCOMPETENCE [None]
  - PSORIASIS [None]
